FAERS Safety Report 11428940 (Version 1)
Quarter: 2015Q3

REPORT INFORMATION
  Report Type: Spontaneous
  Country: US (occurrence: US)
  Receive Date: 20150828
  Receipt Date: 20150828
  Transmission Date: 20151125
  Serious: Yes (Hospitalization)
  Sender: FDA-Public Use
  Company Number: US-ROCHE-1195050

PATIENT
  Sex: Male

DRUGS (4)
  1. BOCEPREVIR [Suspect]
     Active Substance: BOCEPREVIR
     Indication: CHRONIC HEPATITIS C
     Route: 065
  2. PEGASYS [Suspect]
     Active Substance: PEGINTERFERON ALFA-2A
     Indication: CHRONIC HEPATITIS C
     Route: 058
     Dates: start: 20120914, end: 20130322
  3. RIBASPHERE [Suspect]
     Active Substance: RIBAVIRIN
     Indication: CHRONIC HEPATITIS C
     Dosage: 1000 MG IN DIVIDED DOSES, 600/400
     Route: 065
     Dates: start: 20120914
  4. RIBASPHERE [Suspect]
     Active Substance: RIBAVIRIN
     Dosage: 600 MG/DAY, 400/200
     Route: 065

REACTIONS (2)
  - Injection site reaction [Recovering/Resolving]
  - Anaemia [Unknown]
